FAERS Safety Report 5686244-X (Version None)
Quarter: 2008Q1

REPORT INFORMATION
  Report Type: 
  Country: None (occurrence: None)
  Receive Date: 20080328
  Receipt Date: 20070815
  Transmission Date: 20080703
  Serious: No
  Sender: FDA-Public Use
  Company Number: US-BAYER-US-2007-030539

PATIENT
  Age: 40 Year
  Sex: Female
  Weight: 57 kg

DRUGS (3)
  1. MIRENA [Suspect]
     Indication: CONTRACEPTION
     Route: 015
     Dates: start: 20070301
  2. DECONGESTANT [Concomitant]
  3. NASAL PREPARATIONS [Concomitant]
     Route: 045

REACTIONS (5)
  - ALOPECIA [None]
  - ANXIETY [None]
  - ARTHRALGIA [None]
  - ARTHRITIS [None]
  - SINUSITIS [None]
